FAERS Safety Report 23470516 (Version 1)
Quarter: 2024Q1

REPORT INFORMATION
  Report Type: Spontaneous
  Country: GB (occurrence: GB)
  Receive Date: 20240202
  Receipt Date: 20240202
  Transmission Date: 20240410
  Serious: Yes (Life-Threatening, Hospitalization, Disabling, Other)
  Sender: FDA-Public Use
  Company Number: None

PATIENT
  Age: 26 Year
  Sex: Female

DRUGS (2)
  1. ABILIFY [Suspect]
     Active Substance: ARIPIPRAZOLE
     Indication: Adverse drug reaction
     Dosage: UNK
     Route: 065
     Dates: end: 2013
  2. ABILIFY [Suspect]
     Active Substance: ARIPIPRAZOLE
     Indication: Aggression

REACTIONS (38)
  - Joint lock [Recovering/Resolving]
  - Balance disorder [Recovered/Resolved]
  - Stiff tongue [Recovered/Resolved]
  - Nerve injury [Recovering/Resolving]
  - Paralysis [Recovered/Resolved]
  - Sensitisation [Not Recovered/Not Resolved]
  - Spinal pain [Recovered/Resolved]
  - Diplegia [Recovered/Resolved]
  - Heart rate abnormal [Recovered/Resolved]
  - Skin exfoliation [Recovered/Resolved]
  - Pain of skin [Recovering/Resolving]
  - Neuralgia [Recovering/Resolving]
  - Burning sensation [Recovered/Resolved]
  - Pain in jaw [Recovered/Resolved]
  - Sleep disorder [Recovered/Resolved]
  - Joint stiffness [Not Recovered/Not Resolved]
  - Extrasystoles [Recovered/Resolved]
  - Bradykinesia [Recovering/Resolving]
  - Mobility decreased [Recovered/Resolved]
  - Dyspnoea [Recovered/Resolved]
  - Pain in extremity [Recovered/Resolved with Sequelae]
  - Arthralgia [Not Recovered/Not Resolved]
  - Asthenia [Not Recovered/Not Resolved]
  - Abdominal pain upper [Recovered/Resolved]
  - Restless legs syndrome [Recovered/Resolved]
  - Parkinsonism [Recovered/Resolved]
  - Dyskinesia [Recovering/Resolving]
  - Alopecia [Recovering/Resolving]
  - Weight decreased [Recovered/Resolved]
  - Musculoskeletal stiffness [Recovering/Resolving]
  - Fatigue [Recovered/Resolved]
  - Tremor [Recovered/Resolved]
  - Hypersensitivity [Not Recovered/Not Resolved]
  - Skin exfoliation [Recovered/Resolved]
  - Joint stiffness [Recovered/Resolved]
  - Wheelchair user [Unknown]
  - Fibromyalgia [Unknown]
  - Product use in unapproved indication [Unknown]

NARRATIVE: CASE EVENT DATE: 20100101
